FAERS Safety Report 19620622 (Version 2)
Quarter: 2021Q3

REPORT INFORMATION
  Report Type: Report from Study
  Country: None (occurrence: JP)
  Receive Date: 20210728
  Receipt Date: 20210805
  Transmission Date: 20211014
  Serious: Yes (Death)
  Sender: FDA-Public Use
  Company Number: JP-BAUSCH-BL-2021-025732

PATIENT
  Age: 57 Year
  Sex: Male
  Weight: 55 kg

DRUGS (27)
  1. THYRADIN S [Concomitant]
     Active Substance: LEVOTHYROXINE SODIUM
     Indication: HYPOTHYROIDISM
  2. CRESTOR [Concomitant]
     Active Substance: ROSUVASTATIN CALCIUM
     Indication: DYSLIPIDAEMIA
  3. CHOLEBINE [Concomitant]
     Active Substance: COLESTILAN CHLORIDE
     Indication: DYSLIPIDAEMIA
  4. ROSUVASTATIN CALCIUM. [Concomitant]
     Active Substance: ROSUVASTATIN CALCIUM
     Indication: DYSLIPIDAEMIA
  5. TARGRETIN [Suspect]
     Active Substance: BEXAROTENE
     Dosage: ALTERNATE ADMINISTRATION OF 150 MG/DAY AND 225 MG/DAY
     Route: 048
     Dates: start: 20170407, end: 20170608
  6. TARGRETIN [Suspect]
     Active Substance: BEXAROTENE
     Dosage: 225 MG/DAY
     Route: 048
     Dates: start: 20170609, end: 20170825
  7. LIPIDIL [Concomitant]
     Active Substance: FENOFIBRATE
     Indication: PRODUCT USED FOR UNKNOWN INDICATION
     Dosage: STARTED BEFORE TARGRETIN ADMINISTRATION
     Dates: end: 20170213
  8. THYRADIN S [Concomitant]
     Active Substance: LEVOTHYROXINE SODIUM
  9. ZETIA [Concomitant]
     Active Substance: EZETIMIBE
     Indication: DYSLIPIDAEMIA
  10. TARGRETIN [Suspect]
     Active Substance: BEXAROTENE
     Dosage: ALTERNATE ADMINISTRATION OF 225 MG/DAY AND 300 MG/DAY
     Route: 048
     Dates: start: 20170826, end: 20180628
  11. TARGRETIN [Suspect]
     Active Substance: BEXAROTENE
     Dosage: 150 MG/DAY
     Route: 048
     Dates: start: 20191128, end: 20200701
  12. TARGRETIN [Suspect]
     Active Substance: BEXAROTENE
     Dosage: DOSE DECREASED (DOSE UNKNOWN)
     Route: 048
     Dates: start: 20200702
  13. THYRADIN S [Concomitant]
     Active Substance: LEVOTHYROXINE SODIUM
     Indication: PROPHYLAXIS
  14. CHOLEBINE [Concomitant]
     Active Substance: COLESTILAN CHLORIDE
  15. EPADEL [Concomitant]
     Active Substance: ICOSAPENT
     Indication: DYSLIPIDAEMIA
  16. DERMOVATE [Concomitant]
     Active Substance: CLOBETASOL
     Indication: PRODUCT USED FOR UNKNOWN INDICATION
  17. LIPIDIL [Concomitant]
     Active Substance: FENOFIBRATE
  18. CRESTOR [Concomitant]
     Active Substance: ROSUVASTATIN CALCIUM
     Indication: DYSLIPIDAEMIA
  19. JUVELA N [Concomitant]
     Active Substance: TOCOPHERYL NICOTINATE, D-.ALPHA.
     Indication: DYSLIPIDAEMIA
  20. JUVELA N [Concomitant]
     Active Substance: TOCOPHERYL NICOTINATE, D-.ALPHA.
  21. JUVELA N [Concomitant]
     Active Substance: TOCOPHERYL NICOTINATE, D-.ALPHA.
  22. TARGRETIN [Suspect]
     Active Substance: BEXAROTENE
     Dosage: 150 MG/DAY
     Route: 048
     Dates: start: 20170221, end: 20170406
  23. POTELIGEO [Concomitant]
     Active Substance: MOGAMULIZUMAB-KPKC
     Indication: PRODUCT USED FOR UNKNOWN INDICATION
     Dosage: GENETICAL RECOMBINATION
     Dates: start: 20161129
  24. TARGRETIN [Suspect]
     Active Substance: BEXAROTENE
     Indication: CUTANEOUS T-CELL LYMPHOMA
     Dosage: 225 MG/DAY
     Route: 048
     Dates: start: 20170126, end: 20170213
  25. TARGRETIN [Suspect]
     Active Substance: BEXAROTENE
     Dosage: 225 MG/DAY
     Route: 048
     Dates: start: 20191119, end: 20191127
  26. LIPIDIL [Concomitant]
     Active Substance: FENOFIBRATE
     Dates: start: 20170214, end: 20171023
  27. THYRADIN S [Concomitant]
     Active Substance: LEVOTHYROXINE SODIUM

REACTIONS (1)
  - Sudden death [Fatal]
